FAERS Safety Report 24755957 (Version 1)
Quarter: 2024Q4

REPORT INFORMATION
  Report Type: Spontaneous
  Country: CN (occurrence: CN)
  Receive Date: 20241219
  Receipt Date: 20241219
  Transmission Date: 20250115
  Serious: Yes (Other)
  Sender: BEIGENE
  Company Number: CN-BEIGENE-BGN-2024-020245

PATIENT

DRUGS (5)
  1. TISLELIZUMAB [Suspect]
     Active Substance: TISLELIZUMAB
     Indication: Hepatic cancer
     Dosage: 200 MILLIGRAM
     Route: 041
     Dates: start: 20240807
  2. TISLELIZUMAB [Suspect]
     Active Substance: TISLELIZUMAB
     Indication: Chronic hepatitis B
     Dosage: 200 MILLIGRAM
     Route: 041
     Dates: start: 20240904
  3. TISLELIZUMAB [Suspect]
     Active Substance: TISLELIZUMAB
     Dosage: 200 MILLIGRAM
     Route: 041
     Dates: start: 20240929
  4. TISLELIZUMAB [Suspect]
     Active Substance: TISLELIZUMAB
     Dosage: 200 MILLIGRAM
     Route: 041
     Dates: start: 20241027
  5. TISLELIZUMAB [Suspect]
     Active Substance: TISLELIZUMAB
     Dosage: 200 MILLIGRAM
     Route: 041
     Dates: start: 20241130

REACTIONS (6)
  - Brain neoplasm malignant [Unknown]
  - Adrenal neoplasm [Unknown]
  - Hypersensitivity [Recovering/Resolving]
  - Spinal osteoarthritis [Unknown]
  - Renal cyst [Unknown]
  - Dyslipidaemia [Unknown]

NARRATIVE: CASE EVENT DATE: 20241130
